FAERS Safety Report 14045416 (Version 3)
Quarter: 2017Q4

REPORT INFORMATION
  Report Type: Spontaneous
  Country: PL (occurrence: PL)
  Receive Date: 20171005
  Receipt Date: 20171020
  Transmission Date: 20180321
  Serious: Yes (Life-Threatening)
  Sender: FDA-Public Use
  Company Number: PL-ROCHE-2004084

PATIENT
  Age: 69 Year
  Weight: 54 kg

DRUGS (7)
  1. POLPRIL [Concomitant]
     Active Substance: RAMIPRIL
     Dosage: POST-INFARCTION PROVISION (1X1)
     Route: 048
     Dates: start: 20170729
  2. NOLPAZA (POLAND) [Concomitant]
     Dosage: POST-INFARCTION PROVISION (1X1)
     Route: 048
     Dates: start: 20170729
  3. ZELBORAF [Suspect]
     Active Substance: VEMURAFENIB
     Indication: MALIGNANT MELANOMA
     Dosage: 2X480G
     Route: 048
     Dates: start: 20170110, end: 20170823
  4. AREPLEX [Concomitant]
     Active Substance: CLOPIDOGREL BISULFATE
     Dosage: 1X1
     Route: 048
     Dates: start: 20170729
  5. BISOCARD [Concomitant]
     Active Substance: BISOPROLOL
     Dosage: POST-INFARCTION PROVISION (1X1)
     Route: 048
     Dates: start: 20170729
  6. ATORVASTEROL [Concomitant]
     Active Substance: ATORVASTATIN
     Dosage: POST-INFARCTION PROVISION (1X1)
     Route: 048
     Dates: start: 20170729
  7. ACARD [Concomitant]
     Active Substance: ASPIRIN
     Dosage: POST-INFARCTION PROVISION (1X1)
     Route: 048
     Dates: start: 20170729

REACTIONS (3)
  - Acute myocardial infarction [Recovered/Resolved]
  - Goitre [Unknown]
  - Acute myocardial infarction [Recovered/Resolved]

NARRATIVE: CASE EVENT DATE: 20170725
